FAERS Safety Report 10630624 (Version 1)
Quarter: 2014Q4

REPORT INFORMATION
  Report Type: Spontaneous
  Country: US (occurrence: US)
  Receive Date: 20141205
  Receipt Date: 20141205
  Transmission Date: 20150529
  Serious: No
  Sender: FDA-Public Use
  Company Number: US-BRISTOL-MYERS SQUIBB COMPANY-21468855

PATIENT
  Age: 60 Year
  Sex: Male

DRUGS (4)
  1. LANTUS [Concomitant]
     Active Substance: INSULIN GLARGINE
  2. NOVOLOG [Concomitant]
     Active Substance: INSULIN ASPART
  3. BYETTA [Suspect]
     Active Substance: EXENATIDE
  4. BYDUREON [Suspect]
     Active Substance: EXENATIDE
     Indication: TYPE 2 DIABETES MELLITUS
     Dosage: BYDUREON PEN?2-3 YEARS.

REACTIONS (6)
  - Weight decreased [Unknown]
  - Drug dose omission [Unknown]
  - Decreased appetite [Unknown]
  - Device misuse [Unknown]
  - Blood glucose increased [Unknown]
  - Blood glucose decreased [Unknown]
